FAERS Safety Report 5591144-X (Version None)
Quarter: 2008Q1

REPORT INFORMATION
  Report Type: 
  Country: None (occurrence: None)
  Receive Date: 20080110
  Receipt Date: 20080110
  Transmission Date: 20080703
  Serious: Yes (Life-Threatening, Other)
  Sender: FDA-Public Use
  Company Number: None

PATIENT
  Age: 46 Year
  Sex: Female
  Weight: 49.8957 kg

DRUGS (1)
  1. CHANTIX [Suspect]
     Indication: SMOKING CESSATION THERAPY
     Dosage: 1MG  2 PER DAY PO
     Route: 048
     Dates: start: 20070710, end: 20070730

REACTIONS (8)
  - ANGER [None]
  - FEAR [None]
  - HYPERVIGILANCE [None]
  - INSOMNIA [None]
  - MANIA [None]
  - OBSESSIVE-COMPULSIVE DISORDER [None]
  - PSYCHOMOTOR HYPERACTIVITY [None]
  - SUICIDAL IDEATION [None]
